FAERS Safety Report 6577762-0 (Version None)
Quarter: 2010Q1

REPORT INFORMATION
  Report Type: 
  Country: None (occurrence: None)
  Receive Date: 20100211
  Receipt Date: 20100201
  Transmission Date: 20100710
  Serious: Yes (Other)
  Sender: FDA-Public Use
  Company Number: BR-ROCHE-662903

PATIENT
  Sex: Female
  Weight: 53 kg

DRUGS (9)
  1. BONIVA [Suspect]
     Indication: OSTEOPOROSIS
     Route: 048
     Dates: start: 20060101
  2. BONIVA [Suspect]
     Route: 048
     Dates: start: 20080101
  3. BONIVA [Suspect]
     Route: 048
     Dates: start: 20090101
  4. ABLOK PLUS [Concomitant]
     Indication: HYPERTENSION
     Route: 048
     Dates: start: 20070101
  5. ARADOIS [Concomitant]
     Indication: HYPERTENSION
     Route: 048
     Dates: start: 20070101
  6. METICORTEN [Concomitant]
     Dates: start: 20090101
  7. CENTRUM [Concomitant]
     Indication: VITAMIN SUPPLEMENTATION
  8. CALCIUM [Concomitant]
     Dates: start: 20100101
  9. VITAMINE D [Concomitant]
     Dates: start: 20100101

REACTIONS (4)
  - CATARACT OPERATION [None]
  - CONNECTIVE TISSUE DISORDER [None]
  - GASTROINTESTINAL INFECTION [None]
  - HYPERGLYCAEMIA [None]
